FAERS Safety Report 8452941-6 (Version None)
Quarter: 2012Q2

REPORT INFORMATION
  Report Type: 
  Country: None (occurrence: None)
  Receive Date: 20120620
  Receipt Date: 20120612
  Transmission Date: 20120825
  Serious: Yes (Hospitalization)
  Sender: FDA-Public Use
  Company Number: PHHY2012CH051079

PATIENT
  Age: 85 Year
  Sex: Male
  Weight: 68 kg

DRUGS (9)
  1. ISOPTIN [Concomitant]
     Dosage: 120 MG, QD
     Route: 048
  2. SINTROM [Suspect]
     Indication: ATRIAL FIBRILLATION
     Dosage: 2 MG, QD
     Route: 048
     Dates: end: 20120502
  3. SPIRIVA [Concomitant]
     Dosage: 18 UG, QD
  4. TORSEMIDE [Concomitant]
     Dosage: 10 MG, QD
     Route: 048
     Dates: start: 20120501, end: 20120502
  5. ONBREZ [Suspect]
     Dosage: 150 UG, QD
  6. PREDNISONE TAB [Suspect]
     Indication: CHRONIC OBSTRUCTIVE PULMONARY DISEASE
     Dosage: 20 MG, QD
     Route: 048
     Dates: start: 20120427, end: 20120507
  7. SYMBICORT [Concomitant]
     Indication: CHRONIC OBSTRUCTIVE PULMONARY DISEASE
  8. PANTOPRAZOLE [Suspect]
     Indication: PROPHYLAXIS
     Dosage: 40 MG, QD
     Route: 048
     Dates: start: 20120427, end: 20120502
  9. SINTROM [Suspect]
     Indication: ATRIAL FLUTTER

REACTIONS (2)
  - INTERNATIONAL NORMALISED RATIO INCREASED [None]
  - CHRONIC OBSTRUCTIVE PULMONARY DISEASE [None]
